FAERS Safety Report 5531971-8 (Version None)
Quarter: 2007Q4

REPORT INFORMATION
  Report Type: 
  Country: None (occurrence: None)
  Receive Date: 20071128
  Receipt Date: 20071128
  Transmission Date: 20080405
  Serious: Yes (Other)
  Sender: FDA-Public Use
  Company Number: None

PATIENT
  Age: 83 Year
  Sex: Male
  Weight: 88.4514 kg

DRUGS (1)
  1. VIAGRA [Suspect]
     Dosage: TAKE ONE-HALF TO ONE TABLET AS NEEDED
     Dates: end: 20071023

REACTIONS (2)
  - SUDDEN HEARING LOSS [None]
  - TINNITUS [None]
